FAERS Safety Report 7816076-5 (Version None)
Quarter: 2011Q4

REPORT INFORMATION
  Report Type: 
  Country: None (occurrence: None)
  Receive Date: 20111015
  Receipt Date: 20111005
  Transmission Date: 20120403
  Serious: Yes (Hospitalization)
  Sender: FDA-Public Use
  Company Number: US-ASTRAZENECA-2011SE47424

PATIENT
  Age: 48 Year
  Sex: Female

DRUGS (2)
  1. UNSPECIFIED [Suspect]
     Route: 065
  2. SEROQUEL [Suspect]
     Indication: BIPOLAR DISORDER
     Route: 048

REACTIONS (3)
  - DRUG DOSE OMISSION [None]
  - ASTHENIA [None]
  - SYNCOPE [None]
